FAERS Safety Report 4380778-6 (Version None)
Quarter: 2004Q2

REPORT INFORMATION
  Report Type: 
  Country: None (occurrence: None)
  Receive Date: 20040616
  Receipt Date: 20040531
  Transmission Date: 20050107
  Serious: Yes (Hospitalization)
  Sender: FDA-Public Use
  Company Number: JP_040302805

PATIENT
  Age: 36 Year
  Sex: Male
  Weight: 35 kg

DRUGS (6)
  1. ZYPREXA [Suspect]
     Indication: SCHIZOPHRENIA, PARANOID TYPE
     Dosage: 10 MG/1 DAY
     Dates: start: 20030224, end: 20040112
  2. TASMOLIN (BIPERIDEN) [Concomitant]
  3. LEVOTOMIN (LEVOMEPROMAZINE MALEATE) [Concomitant]
  4. LEXOTAN (BROMAZEPAM) [Concomitant]
  5. ASPARA K (ASPARTATE POTASSIUM) [Concomitant]
  6. ALINAMIN F (FURSULTIAMINE) [Concomitant]

REACTIONS (6)
  - BLOOD CHLORIDE DECREASED [None]
  - BLOOD LACTATE DEHYDROGENASE INCREASED [None]
  - BLOOD TRIGLYCERIDES INCREASED [None]
  - DEPRESSED LEVEL OF CONSCIOUSNESS [None]
  - EATING DISORDER [None]
  - HYPOKALAEMIA [None]
